FAERS Safety Report 8740559 (Version 3)
Quarter: 2013Q4

REPORT INFORMATION
  Report Type: Spontaneous
  Country: US (occurrence: US)
  Receive Date: 20120823
  Receipt Date: 20131003
  Transmission Date: 20140711
  Serious: No
  Sender: FDA-Public Use
  Company Number: US-009507513-1208USA007387

PATIENT
  Sex: Female
  Weight: 58.96 kg

DRUGS (7)
  1. MAXALT [Suspect]
     Indication: MIGRAINE
     Dosage: UNK
     Dates: start: 2002, end: 2003
  2. IMITREX (SUMATRIPTAN SUCCINATE) [Suspect]
     Indication: MIGRAINE
     Dosage: 5 MG, PRN
  3. IMITREX (SUMATRIPTAN SUCCINATE) [Suspect]
     Dosage: 10 UNK, UNK
  4. IBUPROFEN [Concomitant]
     Indication: OSTEOARTHRITIS
     Dosage: 800 MG, PRN
  5. ASPIRIN [Concomitant]
     Indication: OSTEOARTHRITIS
     Dosage: 325 MG, PRN
  6. ZOMIG [Concomitant]
     Indication: MIGRAINE
     Dosage: UNK
  7. AMERGE [Concomitant]
     Indication: MIGRAINE
     Dosage: UNK

REACTIONS (1)
  - Drug ineffective [Unknown]
